FAERS Safety Report 7075221-2 (Version None)
Quarter: 2010Q4

REPORT INFORMATION
  Report Type: 
  Country: None (occurrence: None)
  Receive Date: 20101030
  Receipt Date: 20100903
  Transmission Date: 20110411
  Serious: No
  Sender: FDA-Public Use
  Company Number: US-WYE-H16115810

PATIENT
  Sex: Female
  Weight: 59.02 kg

DRUGS (2)
  1. PRISTIQ [Suspect]
     Indication: DEPRESSION
     Route: 048
     Dates: start: 20100604, end: 20100601
  2. DEPO-PROVERA [Concomitant]
     Dosage: UNKNOWN

REACTIONS (6)
  - ANXIETY [None]
  - ASTHENIA [None]
  - CONDITION AGGRAVATED [None]
  - DISTURBANCE IN ATTENTION [None]
  - FEELING ABNORMAL [None]
  - PANIC ATTACK [None]
